FAERS Safety Report 8996216 (Version 1)
Quarter: 2013Q1

REPORT INFORMATION
  Report Type: Spontaneous
  Country: US (occurrence: US)
  Receive Date: 20130103
  Receipt Date: 20130103
  Transmission Date: 20140127
  Serious: No
  Sender: FDA-Public Use
  Company Number: US-ASTRAZENECA-2012SE91028

PATIENT
  Sex: Male

DRUGS (2)
  1. CRESTOR [Suspect]
     Route: 048
  2. GABAPENTIN [Concomitant]

REACTIONS (6)
  - Pain [Unknown]
  - Confusional state [Unknown]
  - Weight increased [Unknown]
  - Headache [Unknown]
  - Pain in extremity [Unknown]
  - Musculoskeletal pain [Unknown]
